FAERS Safety Report 21602215 (Version 1)
Quarter: 2022Q4

REPORT INFORMATION
  Report Type: Spontaneous
  Country: US (occurrence: None)
  Receive Date: 20221115
  Receipt Date: 20221115
  Transmission Date: 20230112
  Serious: Yes (Disabling)
  Sender: FDA-Public Use
  Company Number: None

PATIENT
  Age: 71 Year
  Sex: Female
  Weight: 87.75 kg

DRUGS (1)
  1. DEX-MOXI [Suspect]
     Active Substance: DEXAMETHASONE SODIUM PHOSPHATE\MOXIFLOXACIN HYDROCHLORIDE MONOHYDRATE
     Indication: Surgery

REACTIONS (7)
  - Eye swelling [None]
  - Eye pain [None]
  - Pupil fixed [None]
  - Photophobia [None]
  - Blindness [None]
  - Recalled product administered [None]
  - Product sterility issue [None]

NARRATIVE: CASE EVENT DATE: 20211203
